FAERS Safety Report 8423339-1 (Version None)
Quarter: 2012Q2

REPORT INFORMATION
  Report Type: 
  Country: None (occurrence: None)
  Receive Date: 20120608
  Receipt Date: 20120605
  Transmission Date: 20120825
  Serious: Yes (Hospitalization, Other)
  Sender: FDA-Public Use
  Company Number: JP-PFIZER INC-2012077788

PATIENT
  Age: 84 Year
  Sex: Female
  Weight: 33 kg

DRUGS (2)
  1. ARICEPT [Suspect]
     Indication: DEMENTIA ALZHEIMER'S TYPE
     Dosage: 5 MG, 1X/DAY
     Route: 048
     Dates: start: 20110101, end: 20120321
  2. LYRICA [Suspect]
     Indication: BACK PAIN
     Dosage: 75 MG, 1X/DAY
     Route: 048
     Dates: start: 20120101, end: 20120320

REACTIONS (3)
  - SYNCOPE [None]
  - BLOOD PRESSURE ORTHOSTATIC DECREASED [None]
  - DYSPHAGIA [None]
